FAERS Safety Report 22295468 (Version 2)
Quarter: 2023Q2

REPORT INFORMATION
  Report Type: Report from Study
  Country: US (occurrence: US)
  Receive Date: 20230508
  Receipt Date: 20230616
  Transmission Date: 20230721
  Serious: Yes (Other)
  Sender: FDA-Public Use
  Company Number: US-MYLANLABS-2023M1046991

PATIENT
  Age: 53 Year
  Sex: Male
  Weight: 117.48 kg

DRUGS (2)
  1. CLOZAPINE [Suspect]
     Active Substance: CLOZAPINE
     Indication: Product used for unknown indication
     Dosage: UNK
     Route: 065
  2. CLOZAPINE [Suspect]
     Active Substance: CLOZAPINE
     Dosage: 250 MILLIGRAM, QD (250 MG ONE BID PLUS 50 MG ONE HS)
     Route: 065

REACTIONS (5)
  - Small intestinal obstruction [Unknown]
  - Colon cancer [Unknown]
  - Metastatic neoplasm [Unknown]
  - Neutropenia [Unknown]
  - Psychiatric decompensation [Unknown]

NARRATIVE: CASE EVENT DATE: 20230112
